FAERS Safety Report 12647467 (Version 1)
Quarter: 2016Q3

REPORT INFORMATION
  Report Type: Spontaneous
  Country: US (occurrence: US)
  Receive Date: 20160812
  Receipt Date: 20160812
  Transmission Date: 20161109
  Serious: No
  Sender: FDA-Public Use
  Company Number: US-BRAINTREE LABORATORIES-150344

PATIENT
  Age: 46 Year
  Sex: Female
  Weight: 51.26 kg

DRUGS (1)
  1. PEG-3350 AND ELECTROLYTES [Suspect]
     Active Substance: POLYETHYLENE GLYCOL 3350\POTASSIUM CHLORIDE\SODIUM BICARBONATE\SODIUM CHLORIDE\SODIUM SULFATE\SODIUM SULFATE ANHYDROUS
     Indication: COLONOSCOPY
     Dosage: UNK
     Route: 048
     Dates: start: 20150830, end: 20150830

REACTIONS (2)
  - Haematochezia [None]
  - Vomiting [None]

NARRATIVE: CASE EVENT DATE: 20150830
